FAERS Safety Report 5712854-7 (Version None)
Quarter: 2008Q2

REPORT INFORMATION
  Report Type: 
  Country: None (occurrence: None)
  Receive Date: 20080422
  Receipt Date: 20080415
  Transmission Date: 20081010
  Serious: Yes (Life-Threatening, Hospitalization, Disabling)
  Sender: FDA-Public Use
  Company Number: B0511110A

PATIENT
  Age: 18 Year
  Sex: Male
  Weight: 75 kg

DRUGS (7)
  1. ATRIANCE [Suspect]
     Indication: LEUKAEMIA
     Dosage: 650MGM2 PER DAY
     Route: 042
     Dates: start: 20070606
  2. FLUDARABINE PHOSPHATE [Suspect]
     Indication: BONE MARROW TRANSPLANT
     Dosage: 40MGM2 PER DAY
     Route: 042
     Dates: start: 20071028, end: 20071031
  3. CYTOSAR [Concomitant]
     Dates: start: 20070629
  4. METHOTREXATE [Concomitant]
     Dosage: 12MG CYCLIC
     Dates: start: 20070821
  5. AMSACRINE [Concomitant]
     Dosage: 200MG CYCLIC
     Route: 042
     Dates: start: 20070629
  6. DAUNOXOME [Concomitant]
     Dosage: 117.6MG CYCLIC
     Route: 042
     Dates: start: 20070920
  7. CRANIAL IRRADIATION [Concomitant]

REACTIONS (18)
  - ATAXIA [None]
  - BLADDER DISORDER [None]
  - BONE MARROW TRANSPLANT [None]
  - COORDINATION ABNORMAL [None]
  - CSF PROTEIN INCREASED [None]
  - DRUG INTERACTION [None]
  - DYSAESTHESIA [None]
  - DYSPRAXIA [None]
  - MONOPLEGIA [None]
  - MYELITIS TRANSVERSE [None]
  - NEUROTOXICITY [None]
  - PARAESTHESIA [None]
  - PARALYSIS [None]
  - PERIPHERAL MOTOR NEUROPATHY [None]
  - PERIPHERAL SENSORY NEUROPATHY [None]
  - POLYNEUROPATHY [None]
  - QUADRIPLEGIA [None]
  - SPINAL CORD NEOPLASM [None]
